FAERS Safety Report 4381679-X (Version None)
Quarter: 2004Q2

REPORT INFORMATION
  Report Type: 
  Country: None (occurrence: None)
  Receive Date: 20040603
  Receipt Date: 20040217
  Transmission Date: 20050107
  Serious: Yes (Other)
  Sender: FDA-Public Use
  Company Number: 200318590US

PATIENT
  Sex: Female
  Weight: 75.9 kg

DRUGS (3)
  1. ENOXAPARIN SODIUM [Suspect]
     Dosage: 76 MG Q12H
     Dates: start: 20030705, end: 20030709
  2. LOVENOX [Suspect]
  3. OTHER MEDICATIONS NOS [Concomitant]

REACTIONS (1)
  - INJECTION SITE HAEMORRHAGE [None]
